FAERS Safety Report 21614455 (Version 2)
Quarter: 2022Q4

REPORT INFORMATION
  Report Type: Report from Study
  Country: NL (occurrence: NL)
  Receive Date: 20221118
  Receipt Date: 20221212
  Transmission Date: 20230113
  Serious: Yes (Other)
  Sender: FDA-Public Use
  Company Number: NL-ABBVIE-4205546

PATIENT
  Age: 70 Year
  Sex: Male

DRUGS (6)
  1. CARBIDOPA\LEVODOPA [Suspect]
     Active Substance: CARBIDOPA\LEVODOPA
     Indication: Parkinson^s disease
     Dosage: MD: 14.2ML, CD: 5.7ML/H, ED: 3.5ML, END: 3.5ML, CND: 2.8ML/H?REMAINS AT 16 HOURS
     Route: 050
  2. CARBIDOPA\LEVODOPA [Suspect]
     Active Substance: CARBIDOPA\LEVODOPA
     Route: 050
     Dates: start: 20210914
  3. CARBIDOPA\LEVODOPA [Suspect]
     Active Substance: CARBIDOPA\LEVODOPA
     Dosage: MD: 17.0ML?REMAINS AT 16 HOURS
     Route: 050
  4. POLYETHYLENE GLYCOLS [Concomitant]
     Active Substance: POLYETHYLENE GLYCOLS
     Indication: Bowel movement irregularity
     Dosage: 2 SACHET
  5. APOMORPHINE [Concomitant]
     Active Substance: APOMORPHINE
     Indication: Product used for unknown indication
  6. ENTACAPONE [Concomitant]
     Active Substance: ENTACAPONE
     Indication: Parkinson^s disease
     Dosage: 800 MILLIGRAM
     Route: 048

REACTIONS (1)
  - Unevaluable therapy [Not Recovered/Not Resolved]

NARRATIVE: CASE EVENT DATE: 20221113
